FAERS Safety Report 22188300 (Version 6)
Quarter: 2025Q2

REPORT INFORMATION
  Report Type: Report from Study
  Country: DE (occurrence: DE)
  Receive Date: 20230408
  Receipt Date: 20250609
  Transmission Date: 20250717
  Serious: Yes (Congenital Anomaly, Other)
  Sender: UCB
  Company Number: DE-UCBSA-2023017803

PATIENT

DRUGS (4)
  1. LACOSAMIDE [Suspect]
     Active Substance: LACOSAMIDE
     Indication: Epilepsy
     Route: 064
  2. LEVETIRACETAM [Suspect]
     Active Substance: LEVETIRACETAM
     Indication: Epilepsy
     Route: 064
  3. CLOBAZAM [Suspect]
     Active Substance: CLOBAZAM
     Indication: Epilepsy
     Route: 064
  4. OXCARBAZEPINE [Suspect]
     Active Substance: OXCARBAZEPINE
     Indication: Epilepsy
     Route: 064

REACTIONS (3)
  - Congenital hydronephrosis [Unknown]
  - Cryptorchism [Unknown]
  - Maternal exposure during pregnancy [Unknown]
